FAERS Safety Report 20667820 (Version 2)
Quarter: 2022Q2

REPORT INFORMATION
  Report Type: Spontaneous
  Country: DE (occurrence: DE)
  Receive Date: 20220404
  Receipt Date: 20220420
  Transmission Date: 20220721
  Serious: No
  Sender: FDA-Public Use
  Company Number: NL-ADR-91-DEV-03936-02MAR2022

PATIENT
  Sex: Male
  Weight: 110 kg

DRUGS (1)
  1. NEUPRO [Suspect]
     Active Substance: ROTIGOTINE
     Indication: Product used for unknown indication
     Dosage: 2 MILLIGRAM, ONCE DAILY (QD)
     Route: 062

REACTIONS (3)
  - Skin irritation [Unknown]
  - Drug ineffective [Unknown]
  - Device adhesion issue [Unknown]
